FAERS Safety Report 19026654 (Version 1)
Quarter: 2021Q1

REPORT INFORMATION
  Report Type: Spontaneous
  Country: DE (occurrence: DE)
  Receive Date: 20210318
  Receipt Date: 20210318
  Transmission Date: 20210420
  Serious: Yes (Other)
  Sender: FDA-Public Use
  Company Number: NVSC2021DE058696

PATIENT
  Sex: Female

DRUGS (1)
  1. TEGRETAL [Suspect]
     Active Substance: CARBAMAZEPINE
     Indication: PRODUCT USED FOR UNKNOWN INDICATION
     Dosage: 400 MG, PRN (AS NEEDED, (STARTED 50 YEARS AGO))
     Route: 065

REACTIONS (4)
  - Hypertension [Unknown]
  - Seizure [Unknown]
  - Age-related macular degeneration [Not Recovered/Not Resolved]
  - Inappropriate schedule of product administration [Unknown]
